FAERS Safety Report 7420877-5 (Version None)
Quarter: 2011Q2

REPORT INFORMATION
  Report Type: 
  Country: None (occurrence: None)
  Receive Date: 20110418
  Receipt Date: 20110412
  Transmission Date: 20111010
  Serious: Yes (Hospitalization)
  Sender: FDA-Public Use
  Company Number: A0887663A

PATIENT
  Age: 73 Year
  Sex: Male
  Weight: 109.5 kg

DRUGS (1)
  1. AVANDIA [Suspect]
     Dosage: 8MG PER DAY
     Route: 048
     Dates: start: 20041218, end: 20070824

REACTIONS (3)
  - ANGINA PECTORIS [None]
  - ANGINA UNSTABLE [None]
  - MYOCARDIAL ISCHAEMIA [None]
